FAERS Safety Report 9300119 (Version 1)
Quarter: 2013Q1

REPORT INFORMATION
  Report Type: Spontaneous
  Country: US (occurrence: None)
  Receive Date: 20121220
  Receipt Date: 20121220
  Transmission Date: 20140127
  Serious: Yes (Hospitalization)
  Sender: FDA-Public Use
  Company Number: 1207USA006076

PATIENT
  Sex: Male

DRUGS (3)
  1. ZETIA [Suspect]
     Indication: BLOOD CHOLESTEROL INCREASED
     Route: 048
  2. PRAVASTATIN SODIUM (PRAVASTATIN SODIUM) [Concomitant]
  3. TRICOR (ADENOSINE) (ADENOSINE) [Concomitant]

REACTIONS (1)
  - Pancreatitis acute [None]
